FAERS Safety Report 13634696 (Version 3)
Quarter: 2019Q3

REPORT INFORMATION
  Report Type: Spontaneous
  Country: US (occurrence: US)
  Receive Date: 20170609
  Receipt Date: 20190802
  Transmission Date: 20191004
  Serious: Yes (Other)
  Sender: FDA-Public Use
  Company Number: US-009507513-1706USA002026

PATIENT
  Sex: Female
  Weight: 81.63 kg

DRUGS (1)
  1. DECADRON [Suspect]
     Active Substance: DEXAMETHASONE
     Dosage: UNK

REACTIONS (1)
  - Anaphylactic reaction [Unknown]
